FAERS Safety Report 9343724 (Version 2)
Quarter: 2013Q3

REPORT INFORMATION
  Report Type: Spontaneous
  Country: US (occurrence: US)
  Receive Date: 20130612
  Receipt Date: 20130815
  Transmission Date: 20140515
  Serious: Yes (Other)
  Sender: FDA-Public Use
  Company Number: PHEH2013US012453

PATIENT
  Age: 84 Year
  Sex: Female
  Weight: 52 kg

DRUGS (8)
  1. EXELON PATCH [Suspect]
     Indication: DEMENTIA
     Dosage: 4.6 MG, DAILY
     Route: 062
     Dates: start: 201304, end: 201307
  2. LOPRESSOR [Concomitant]
     Dosage: UNK UKN, UNK
     Route: 048
  3. ZOLOFT [Concomitant]
     Indication: DEPRESSION
     Dosage: 50 MG, UNK
     Route: 048
  4. XANAX [Concomitant]
  5. VITAMAN [Concomitant]
  6. OCUGUARD PLUS WITH LUTEIN [Concomitant]
  7. CARDIOPRIL [Concomitant]
     Indication: HYPERTENSION
     Dosage: 20 MG, UNK
     Route: 048
  8. METOPROLOL [Concomitant]
     Indication: HYPERTENSION
     Dosage: 50 MG, UNK
     Route: 048

REACTIONS (5)
  - Macular degeneration [Unknown]
  - Dry eye [Unknown]
  - Rash [Recovered/Resolved]
  - Application site erythema [Recovered/Resolved]
  - Drug dispensing error [Unknown]
